FAERS Safety Report 15291774 (Version 5)
Quarter: 2018Q4

REPORT INFORMATION
  Report Type: Spontaneous
  Country: FR (occurrence: FR)
  Receive Date: 20180817
  Receipt Date: 20181130
  Transmission Date: 20190204
  Serious: Yes (Hospitalization, Other)
  Sender: FDA-Public Use
  Company Number: FR-009507513-1808FRA004203

PATIENT
  Age: 28 Year
  Sex: Female
  Weight: 47 kg

DRUGS (1)
  1. NEXPLANON [Suspect]
     Active Substance: ETONOGESTREL
     Indication: CONTRACEPTION
     Dosage: ONE IMPLANT IN THE LEFT ARM, UNK
     Route: 059
     Dates: start: 20160716, end: 20181115

REACTIONS (7)
  - Device embolisation [Recovered/Resolved]
  - Scar [Unknown]
  - Complication associated with device [Recovered/Resolved]
  - Device deployment issue [Recovered/Resolved]
  - Pneumothorax [Unknown]
  - Complication of device removal [Recovered/Resolved]
  - Cardiac disorder [Unknown]

NARRATIVE: CASE EVENT DATE: 20160716
